APPROVED DRUG PRODUCT: RANITIDINE HYDROCHLORIDE
Active Ingredient: RANITIDINE HYDROCHLORIDE
Strength: EQ 150MG BASE
Dosage Form/Route: TABLET;ORAL
Application: A078542 | Product #001
Applicant: GLENMARK PHARMACEUTICALS INC USA
Approved: Nov 19, 2008 | RLD: No | RS: No | Type: DISCN